FAERS Safety Report 8219806-6 (Version None)
Quarter: 2012Q1

REPORT INFORMATION
  Report Type: 
  Country: None (occurrence: None)
  Receive Date: 20120319
  Receipt Date: 20120305
  Transmission Date: 20120608
  Serious: Yes (Hospitalization)
  Sender: FDA-Public Use
  Company Number: HK-MYLANLABS-2012S1005215

PATIENT
  Age: 86 Year
  Sex: Female

DRUGS (2)
  1. VANCOMYCIN [Suspect]
     Dosage: 500 MG/12H
     Route: 042
  2. VANCOMYCIN [Suspect]
     Indication: STAPHYLOCOCCAL INFECTION
     Dosage: 500 MG/24H
     Route: 042

REACTIONS (1)
  - PATHOGEN RESISTANCE [None]
